FAERS Safety Report 7511948-3 (Version None)
Quarter: 2011Q2

REPORT INFORMATION
  Report Type: 
  Country: None (occurrence: None)
  Receive Date: 20110520
  Receipt Date: 20110516
  Transmission Date: 20111010
  Serious: Yes (Hospitalization)
  Sender: FDA-Public Use
  Company Number: 2011105297

PATIENT
  Age: 81 Year
  Sex: Female

DRUGS (15)
  1. FRAGMIN [Suspect]
     Indication: ISCHAEMIC HEART DISEASE PROPHYLAXIS
     Dosage: 5000 IU, DAILY, SUBCUTANEOUS
     Route: 058
     Dates: start: 20110309, end: 20110511
  2. RANEXA [Concomitant]
  3. VALSARTAN AND HYDROCHLOROTHIAZIDE [Suspect]
     Indication: BLOOD PRESSURE INCREASED
     Dosage: 150 MG, DAILY, ORAL
     Route: 048
     Dates: start: 20110309, end: 20110511
  4. LANSOPRAZOLE [Concomitant]
  5. XALATAN [Concomitant]
  6. ASPIRIN [Suspect]
     Indication: MYOCARDIAL ISCHAEMIA
     Dosage: 100 MG, DAILY, ORAL
     Route: 048
     Dates: start: 20110309, end: 20110511
  7. LASIX [Suspect]
     Indication: BLOOD PRESSURE INCREASED
     Dosage: 150 MG, DAILY, ORAL
     Route: 048
     Dates: start: 20110309, end: 20110511
  8. SIMVASTATIN [Concomitant]
  9. FLUOXETINE HCL [Concomitant]
  10. LANTUS [Concomitant]
  11. NITROGLYCERIN [Concomitant]
  12. PLAVIX [Suspect]
     Indication: ARTERIAL DISORDER
     Dosage: 75 MG, DAILY, ORAL
     Route: 048
     Dates: start: 20110309, end: 20110511
  13. HUMALOG [Concomitant]
  14. CARVEDILOL [Suspect]
     Indication: HYPERTENSION
     Dosage: 6.25 MG, DAILY, ORAL
     Route: 048
     Dates: start: 20110309, end: 20110511
  15. TIMOLOL MALEATE [Concomitant]

REACTIONS (5)
  - NAUSEA [None]
  - BLOOD CREATININE INCREASED [None]
  - SYNCOPE [None]
  - BLOOD UREA INCREASED [None]
  - HYPOTENSION [None]
